FAERS Safety Report 10584833 (Version 2)
Quarter: 2014Q4

REPORT INFORMATION
  Report Type: Report from Study
  Country: HU (occurrence: HU)
  Receive Date: 20141114
  Receipt Date: 20141114
  Transmission Date: 20150529
  Serious: Yes (Death, Life-Threatening, Hospitalization)
  Sender: FDA-Public Use
  Company Number: HU-BRISTOL-MYERS SQUIBB COMPANY-21336318

PATIENT
  Age: 75 Year
  Sex: Male

DRUGS (11)
  1. GLICLAZIDE [Concomitant]
     Active Substance: GLICLAZIDE
  2. AMLODIPINE [Concomitant]
     Active Substance: AMLODIPINE BESYLATE
  3. BISOPROLOL [Concomitant]
     Active Substance: BISOPROLOL
  4. PLACEBO [Suspect]
     Active Substance: UNSPECIFIED INGREDIENT
     Indication: SMALL CELL LUNG CANCER
     Dosage: LAST DOSE:3APR14
     Route: 042
     Dates: start: 20140313, end: 20140403
  5. OXYGEN. [Concomitant]
     Active Substance: OXYGEN
  6. BLINDED: IPILIMUMAB [Suspect]
     Active Substance: IPILIMUMAB
     Indication: SMALL CELL LUNG CANCER
     Dosage: LAST DOSE:3APR14
     Route: 042
     Dates: start: 20140313, end: 20140403
  7. VILDAGLIPTIN [Concomitant]
     Active Substance: VILDAGLIPTIN
  8. CARBOPLATIN. [Suspect]
     Active Substance: CARBOPLATIN
     Indication: SMALL CELL LUNG CANCER
     Dosage: LAST DOSE:1APR14
     Route: 042
     Dates: start: 20140122, end: 20140401
  9. ETOPOSIDE. [Suspect]
     Active Substance: ETOPOSIDE
     Indication: SMALL CELL LUNG CANCER
     Dosage: LAST DOSE:3APR14
     Route: 042
     Dates: start: 20140122, end: 20140403
  10. RAMIPRIL. [Concomitant]
     Active Substance: RAMIPRIL
  11. OMEPRAZOL [Concomitant]
     Active Substance: OMEPRAZOLE

REACTIONS (2)
  - Malignant neoplasm progression [Fatal]
  - Dyspnoea [Not Recovered/Not Resolved]

NARRATIVE: CASE EVENT DATE: 20140604
